FAERS Safety Report 21392616 (Version 1)
Quarter: 2022Q3

REPORT INFORMATION
  Report Type: Spontaneous
  Country: AU (occurrence: AU)
  Receive Date: 20220929
  Receipt Date: 20220929
  Transmission Date: 20221027
  Serious: Yes (Other)
  Sender: FDA-Public Use
  Company Number: AU-JNJFOC-20220946973

PATIENT
  Age: 24 Year
  Sex: Female

DRUGS (15)
  1. TOPAMAX [Suspect]
     Active Substance: TOPIRAMATE
     Indication: Dyspnoea
     Route: 048
  2. TOPAMAX [Suspect]
     Active Substance: TOPIRAMATE
     Indication: Tachycardia
  3. AMISULPRIDE [Suspect]
     Active Substance: AMISULPRIDE
     Indication: Dyspnoea
     Route: 065
  4. AMISULPRIDE [Suspect]
     Active Substance: AMISULPRIDE
     Indication: Tachycardia
  5. CLOZAPINE [Suspect]
     Active Substance: CLOZAPINE
     Indication: Schizophrenia
     Route: 048
  6. DIAZEPAM [Suspect]
     Active Substance: DIAZEPAM
     Indication: Dyspnoea
     Route: 065
  7. DIAZEPAM [Suspect]
     Active Substance: DIAZEPAM
     Indication: Tachycardia
  8. FUROSEMIDE [Suspect]
     Active Substance: FUROSEMIDE
     Indication: Dyspnoea
     Route: 065
  9. FUROSEMIDE [Suspect]
     Active Substance: FUROSEMIDE
     Indication: Tachycardia
  10. METFORMIN HYDROCHLORIDE [Suspect]
     Active Substance: METFORMIN HYDROCHLORIDE
     Indication: Dyspnoea
     Route: 065
  11. METFORMIN HYDROCHLORIDE [Suspect]
     Active Substance: METFORMIN HYDROCHLORIDE
     Indication: Tachycardia
  12. MIRTAZAPINE [Suspect]
     Active Substance: MIRTAZAPINE
     Indication: Dyspnoea
     Route: 065
  13. MIRTAZAPINE [Suspect]
     Active Substance: MIRTAZAPINE
     Indication: Tachycardia
  14. VALPROIC ACID [Suspect]
     Active Substance: VALPROIC ACID
     Indication: Dyspnoea
     Route: 065
  15. VALPROIC ACID [Suspect]
     Active Substance: VALPROIC ACID
     Indication: Tachycardia

REACTIONS (23)
  - Myocarditis [Recovered/Resolved]
  - Spinal fracture [Unknown]
  - Aspartate aminotransferase decreased [Not Recovered/Not Resolved]
  - Blood alkaline phosphatase increased [Not Recovered/Not Resolved]
  - Blood bilirubin decreased [Not Recovered/Not Resolved]
  - Blood cholesterol increased [Recovered/Resolved]
  - Blood glucose increased [Recovering/Resolving]
  - Blood phosphorus increased [Unknown]
  - Blood prolactin increased [Not Recovered/Not Resolved]
  - C-reactive protein increased [Unknown]
  - Haematocrit decreased [Unknown]
  - Haemoglobin decreased [Not Recovered/Not Resolved]
  - Mean cell haemoglobin concentration decreased [Not Recovered/Not Resolved]
  - Mean cell haemoglobin decreased [Not Recovered/Not Resolved]
  - Mean cell volume decreased [Not Recovered/Not Resolved]
  - Red cell distribution width increased [Not Recovered/Not Resolved]
  - Serum ferritin decreased [Unknown]
  - Sinus tachycardia [Unknown]
  - Thyroxine free decreased [Unknown]
  - Transferrin saturation decreased [Unknown]
  - Troponin increased [Unknown]
  - Antipsychotic drug level decreased [Recovered/Resolved]
  - Off label use [Unknown]

NARRATIVE: CASE EVENT DATE: 20111102
